FAERS Safety Report 19766295 (Version 3)
Quarter: 2023Q4

REPORT INFORMATION
  Report Type: Spontaneous
  Country: PT (occurrence: PT)
  Receive Date: 20210831
  Receipt Date: 20231007
  Transmission Date: 20240110
  Serious: Yes (Other)
  Sender: FDA-Public Use
  Company Number: PT-ROCHE-2883969

PATIENT
  Age: 57 Year
  Sex: Female
  Weight: 62 kg

DRUGS (43)
  1. CAPECITABINE [Suspect]
     Active Substance: CAPECITABINE
     Indication: Breast cancer
     Dosage: 1450 MILLIGRAM(OTHER, DATE OF MOST RECENT DOSE: 24/MAY/2021)
     Route: 048
     Dates: start: 20210201
  2. CAPECITABINE [Suspect]
     Active Substance: CAPECITABINE
     Indication: HER2 positive breast cancer
     Dosage: 2900 MILLIGRAM, ONCE A DAY
     Route: 048
     Dates: start: 20210201, end: 20210214
  3. CAPECITABINE [Suspect]
     Active Substance: CAPECITABINE
     Dosage: 4000 MILLIGRAM, ONCE A DAY (TWICE DAILY FOR 2 WEEKS 2000 TWICE DAILY )
     Route: 048
     Dates: start: 20210318, end: 20210421
  4. CAPECITABINE [Suspect]
     Active Substance: CAPECITABINE
     Dosage: 3300 MILLIGRAM, ONCE A DAY (TWICE DAILY FOR 2 WEEKS 1650 TWICE DAILY )
     Route: 048
     Dates: start: 20210430, end: 20210614
  5. DOCETAXEL [Suspect]
     Active Substance: DOCETAXEL
     Indication: Breast cancer
     Dosage: 120 MILLIGRAM (3 WEEK)(DATE OF MOST RECENT DOSE: 04/JUL/2019)
     Route: 042
     Dates: start: 20190308
  6. DOCETAXEL [Suspect]
     Active Substance: DOCETAXEL
     Indication: HER2 positive breast cancer
  7. EXEMESTANE [Suspect]
     Active Substance: EXEMESTANE
     Indication: Breast cancer
     Dosage: 25 MILLIGRAM, ONCE A DAY
     Route: 048
     Dates: start: 20210614
  8. TRASTUZUMAB [Suspect]
     Active Substance: TRASTUZUMAB
     Indication: Breast cancer
     Dosage: 500 MILLIGRAM(3 WEEK)MOST RECENT DOSE PRIOR TO THE EVENT: 07/JAN/2021
     Route: 041
     Dates: start: 20190308, end: 20190308
  9. TRASTUZUMAB [Suspect]
     Active Substance: TRASTUZUMAB
     Indication: HER2 positive breast cancer
     Dosage: 370 MILLIGRAM (3 WEEK)
     Route: 042
     Dates: start: 20190408, end: 20190704
  10. TRASTUZUMAB [Suspect]
     Active Substance: TRASTUZUMAB
     Dosage: 600 MILLIGRAM (3 WEEK)
     Route: 058
     Dates: start: 20210107, end: 20220203
  11. ADO-TRASTUZUMAB EMTANSINE [Suspect]
     Active Substance: ADO-TRASTUZUMAB EMTANSINE
     Indication: Breast cancer
     Dosage: 220 MILLIGRAM(3 WEEK)
     Route: 042
     Dates: start: 20190726, end: 20201119
  12. ADO-TRASTUZUMAB EMTANSINE [Suspect]
     Active Substance: ADO-TRASTUZUMAB EMTANSINE
     Indication: HER2 positive breast cancer
  13. PERTUZUMAB [Suspect]
     Active Substance: PERTUZUMAB
     Indication: Breast cancer
     Dosage: 840 MILLIGRAM(3 WEEK)(MOST RECENT DOSE PRIOR TO THE EVENT: 08/APR/2019)
     Route: 042
     Dates: start: 20190308, end: 20190308
  14. PERTUZUMAB [Suspect]
     Active Substance: PERTUZUMAB
     Indication: HER2 positive breast cancer
     Dosage: 420 MILLIGRAM (3 WEEK)
     Route: 042
     Dates: start: 20190408, end: 20190704
  15. ACETAMINOPHEN\THIOCOLCHICOSIDE [Concomitant]
     Active Substance: ACETAMINOPHEN\THIOCOLCHICOSIDE
     Indication: Product used for unknown indication
     Dosage: UNK(ONGOING = CHECKED)
     Route: 065
     Dates: start: 20200513
  16. ATORVASTATIN [Concomitant]
     Active Substance: ATORVASTATIN
     Indication: Product used for unknown indication
     Dosage: UNK(ONGOING = CHECKED)
     Route: 065
  17. BISOPROLOL [Concomitant]
     Active Substance: BISOPROLOL\BISOPROLOL FUMARATE
     Indication: Product used for unknown indication
     Dosage: UNK(ONGOING = CHECKED)
     Route: 065
  18. CLEMASTINE [Concomitant]
     Active Substance: CLEMASTINE
     Indication: Product used for unknown indication
     Dosage: UNK(ONGOING = CHECKED)
     Route: 065
     Dates: start: 20190308
  19. DESLORATADINE [Concomitant]
     Active Substance: DESLORATADINE
     Indication: Product used for unknown indication
     Dosage: UNK(ONGOING = CHECKED)
     Route: 065
  20. DEXAMETHASONE [Concomitant]
     Active Substance: DEXAMETHASONE
     Indication: Product used for unknown indication
     Dosage: UNK(ONGOING = CHECKED)
     Route: 065
     Dates: start: 20201210
  21. DIAZEPAM [Concomitant]
     Active Substance: DIAZEPAM
     Indication: Product used for unknown indication
     Dosage: UNK (ONGOING = CHECKED)
     Route: 065
     Dates: start: 20210107
  22. ESCITALOPRAM [Concomitant]
     Active Substance: ESCITALOPRAM OXALATE
     Indication: Product used for unknown indication
     Dosage: UNK(ONGOING = CHECKED)
     Route: 065
     Dates: start: 20180305
  23. FLUCONAZOLE [Concomitant]
     Active Substance: FLUCONAZOLE
     Indication: Onycholysis
     Dosage: UNK(ONGOING = NOT CHECKED)
     Route: 065
     Dates: start: 20210429
  24. FUROSEMIDE [Concomitant]
     Active Substance: FUROSEMIDE
     Indication: Product used for unknown indication
     Dosage: UNK
     Route: 065
     Dates: start: 20190429
  25. FUSIDIC ACID [Concomitant]
     Active Substance: FUSIDIC ACID
     Indication: Onycholysis
     Dosage: UNK(ONGOING = NOT CHECKED)
     Route: 065
     Dates: start: 20210429
  26. HYDROXYZINE [Concomitant]
     Active Substance: HYDROXYZINE HYDROCHLORIDE
     Indication: Product used for unknown indication
     Dosage: UNK(ONGOING = CHECKED)
     Route: 065
     Dates: start: 20190726
  27. IRBESARTAN [Concomitant]
     Active Substance: IRBESARTAN
     Indication: Product used for unknown indication
     Dosage: UNK(ONGOING = CHECKED)
     Route: 065
  28. LACTULOSE [Concomitant]
     Active Substance: LACTULOSE
     Indication: Product used for unknown indication
     Dosage: UNK(ONGOING = CHECKED)
     Route: 065
  29. LEVETIRACETAM [Concomitant]
     Active Substance: LEVETIRACETAM
     Indication: Product used for unknown indication
     Dosage: UNK(ONGOING = CHECKED)
     Route: 065
     Dates: start: 20210129
  30. LOPERAMIDE [Concomitant]
     Active Substance: LOPERAMIDE
     Indication: Product used for unknown indication
     Dosage: UNK(ONGOING = CHECKED)
     Route: 065
     Dates: start: 20210129
  31. METHYLPREDNISOLONE [Concomitant]
     Active Substance: METHYLPREDNISOLONE
     Indication: Product used for unknown indication
     Dosage: UNK(ONGOING = CHECKED)
     Route: 065
     Dates: start: 20190308
  32. METOCLOPRAMIDE [Concomitant]
     Active Substance: METOCLOPRAMIDE
     Indication: Product used for unknown indication
     Dosage: UNK(ONGOING = CHECKED)
     Route: 065
     Dates: start: 20190521
  33. METOCLOPRAMIDE [Concomitant]
     Active Substance: METOCLOPRAMIDE
     Dosage: UNK(ONGOING = CHECKED)
     Route: 065
     Dates: start: 20210211
  34. NEUROBION [Concomitant]
     Active Substance: CYANOCOBALAMIN\PYRIDOXINE\THIAMINE
     Indication: Neuropathy peripheral
     Dosage: UNK(ONGOING = CHECKED)
     Route: 065
     Dates: start: 20210429
  35. NYSTATIN [Concomitant]
     Active Substance: NYSTATIN
     Indication: Product used for unknown indication
     Dosage: UNK(ONGOING = CHECKED)
     Route: 065
     Dates: start: 20190521
  36. OMEPRAZOLE [Concomitant]
     Active Substance: OMEPRAZOLE
     Indication: Product used for unknown indication
     Dosage: UNK(ONGOING = CHECKED)
     Route: 065
  37. PREDNISOLONE [Concomitant]
     Active Substance: PREDNISOLONE
     Indication: Product used for unknown indication
     Dosage: UNK(ONGOING = CHECKED)
     Route: 065
     Dates: start: 20190429
  38. QUETIAPINE [Concomitant]
     Active Substance: QUETIAPINE
     Indication: Product used for unknown indication
     Dosage: UNK(ONGOING = CHECKED)
     Route: 065
     Dates: start: 20210107
  39. KETOPROFEN [Concomitant]
     Active Substance: KETOPROFEN
     Indication: Product used for unknown indication
     Dosage: UNK(ONGOING = CHECKED)
     Route: 065
     Dates: start: 20200513
  40. RIVOTRIL [Concomitant]
     Active Substance: CLONAZEPAM
     Indication: Product used for unknown indication
     Dosage: UNK(ONGOING = CHECKED)
     Route: 065
  41. TRAMADOL [Concomitant]
     Active Substance: TRAMADOL\TRAMADOL HYDROCHLORIDE
     Indication: Product used for unknown indication
     Dosage: UNK(ONGOING = NOT CHECKED)
     Route: 065
     Dates: start: 20190329
  42. TRAZODONE [Concomitant]
     Active Substance: TRAZODONE HYDROCHLORIDE
     Indication: Product used for unknown indication
     Dosage: UNK(ONGOING = CHECKED)
     Route: 065
  43. ZOLEDRONIC ACID [Concomitant]
     Active Substance: ZOLEDRONIC ACID
     Indication: Product used for unknown indication
     Dosage: UNK(ONGOING = CHECKED)
     Route: 065
     Dates: start: 20200401

REACTIONS (3)
  - Neuropathy peripheral [Recovered/Resolved]
  - Palmar-plantar erythrodysaesthesia syndrome [Recovered/Resolved]
  - Onycholysis [Recovered/Resolved]

NARRATIVE: CASE EVENT DATE: 20210429
